FAERS Safety Report 23131910 (Version 1)
Quarter: 2023Q4

REPORT INFORMATION
  Report Type: Spontaneous
  Country: FR (occurrence: FR)
  Receive Date: 20231101
  Receipt Date: 20231101
  Transmission Date: 20240110
  Serious: Yes (Other)
  Sender: FDA-Public Use
  Company Number: FR-AMGEN-FRASP2023190408

PATIENT
  Age: 29 Year
  Sex: Female
  Weight: 65.5 kg

DRUGS (1)
  1. FILGRASTIM [Suspect]
     Active Substance: FILGRASTIM
     Indication: Infantile genetic agranulocytosis
     Dosage: 25 MICROGRAM/KILOGRAM, (DAILY) TAD
     Route: 065

REACTIONS (1)
  - Adrenal gland cancer metastatic [Unknown]
